FAERS Safety Report 10595440 (Version 1)
Quarter: 2014Q4

REPORT INFORMATION
  Report Type: Report from Study
  Country: JP (occurrence: JP)
  Receive Date: 20141120
  Receipt Date: 20141120
  Transmission Date: 20150529
  Serious: Yes (Death)
  Sender: FDA-Public Use
  Company Number: JP-TEVA-524063ISR

PATIENT

DRUGS (2)
  1. CISPLATIN. [Suspect]
     Active Substance: CISPLATIN
     Indication: SMALL CELL LUNG CANCER LIMITED STAGE
     Dosage: CYCLIC ON DAY 1 EVERY 3-4 WEEKS FOR THREE CYCLES
     Route: 042
  2. IRINOTECAN [Suspect]
     Active Substance: IRINOTECAN
     Indication: SMALL CELL LUNG CANCER LIMITED STAGE
     Dosage: CYCLIC ON DAYS 1,8,15 EVERY 3-4 WEEKS FOR THREE CYCLES
     Route: 065

REACTIONS (1)
  - Cerebral infarction [Fatal]
